FAERS Safety Report 6715555-1 (Version None)
Quarter: 2010Q2

REPORT INFORMATION
  Report Type: 
  Country: None (occurrence: None)
  Receive Date: 20100507
  Receipt Date: 20100426
  Transmission Date: 20101027
  Serious: Yes (Death, Life-Threatening, Hospitalization, Disabling)
  Sender: FDA-Public Use
  Company Number: ZA-JNJFOC-20100302025

PATIENT
  Sex: Female
  Weight: 48 kg

DRUGS (3)
  1. REVELLEX [Suspect]
     Indication: CROHN'S DISEASE
     Route: 042
  2. REVELLEX [Suspect]
     Route: 042
  3. REVELLEX [Suspect]
     Route: 042

REACTIONS (8)
  - BLOOD CREATININE INCREASED [None]
  - BLOOD SODIUM INCREASED [None]
  - DRUG SPECIFIC ANTIBODY PRESENT [None]
  - HAEMOGLOBIN DECREASED [None]
  - HEADACHE [None]
  - PNEUMONIA [None]
  - STATUS EPILEPTICUS [None]
  - TOXIC ENCEPHALOPATHY [None]
